FAERS Safety Report 21374509 (Version 2)
Quarter: 2022Q3

REPORT INFORMATION
  Report Type: Spontaneous
  Country: US (occurrence: US)
  Receive Date: 20220926
  Receipt Date: 20220926
  Transmission Date: 20221026
  Serious: No
  Sender: FDA-Public Use
  Company Number: US-ALLERGAN-2224557US

PATIENT

DRUGS (2)
  1. DURYSTA [Suspect]
     Active Substance: BIMATOPROST
     Indication: Intraocular pressure increased
     Dosage: 0.01 MG, SINGLE
     Route: 031
     Dates: start: 202205, end: 202207
  2. DURYSTA [Suspect]
     Active Substance: BIMATOPROST
     Indication: Intraocular pressure increased
     Dosage: 0.01 MG, SINGLE
     Route: 031
     Dates: start: 202205, end: 202207

REACTIONS (1)
  - Corneal endothelial cell loss [Unknown]

NARRATIVE: CASE EVENT DATE: 20220401
